FAERS Safety Report 20719221 (Version 4)
Quarter: 2022Q2

REPORT INFORMATION
  Report Type: Other
  Country: JP (occurrence: JP)
  Receive Date: 20220418
  Receipt Date: 20220606
  Transmission Date: 20220721
  Serious: Yes (Hospitalization, Other)
  Sender: FDA-Public Use
  Company Number: JP-CHUGAI-2022012125

PATIENT
  Age: 79 Year
  Sex: Female
  Weight: 54 kg

DRUGS (2)
  1. ENTRECTINIB [Suspect]
     Active Substance: ENTRECTINIB
     Indication: Non-small cell lung cancer
     Route: 048
     Dates: start: 20211124, end: 20211203
  2. ENTRECTINIB [Suspect]
     Active Substance: ENTRECTINIB
     Route: 048
     Dates: start: 20220316, end: 20220404

REACTIONS (9)
  - Movement disorder [Recovering/Resolving]
  - Taste disorder [Recovering/Resolving]
  - Rash [Recovering/Resolving]
  - Memory impairment [Recovering/Resolving]
  - Dysarthria [Recovering/Resolving]
  - Dizziness [Unknown]
  - Hyperaesthesia [Not Recovered/Not Resolved]
  - Muscular weakness [Unknown]
  - Urinary incontinence [Unknown]

NARRATIVE: CASE EVENT DATE: 20211125
